FAERS Safety Report 6293299-0 (Version None)
Quarter: 2009Q3

REPORT INFORMATION
  Report Type: 
  Country: None (occurrence: None)
  Receive Date: 20090731
  Receipt Date: 20090731
  Transmission Date: 20100115
  Serious: Yes (Hospitalization, Other)
  Sender: FDA-Public Use
  Company Number: FR-ABBOTT-08P-056-0481211-00

PATIENT
  Sex: Male

DRUGS (2)
  1. HUMIRA [Suspect]
     Indication: PSORIATIC ARTHROPATHY
     Route: 058
     Dates: start: 20080401, end: 20080902
  2. HUMIRA [Suspect]
     Dates: start: 20060615, end: 20070616

REACTIONS (3)
  - MENINGITIS TUBERCULOUS [None]
  - METASTASES TO BONE [None]
  - PROSTATE CANCER [None]
